FAERS Safety Report 12556046 (Version 1)
Quarter: 2016Q3

REPORT INFORMATION
  Report Type: Spontaneous
  Country: US (occurrence: US)
  Receive Date: 20160714
  Receipt Date: 20160714
  Transmission Date: 20161109
  Serious: No
  Sender: FDA-Public Use
  Company Number: US-BAYER-2016-131937

PATIENT
  Age: 32 Year
  Sex: Female

DRUGS (1)
  1. FINACEA [Suspect]
     Active Substance: AZELAIC ACID
     Indication: ROSACEA
     Dosage: UNK, ONCE
     Route: 061
     Dates: start: 20160629, end: 20160629

REACTIONS (5)
  - Product use issue [None]
  - Rash pruritic [None]
  - Skin swelling [None]
  - Swelling face [None]
  - Skin discolouration [None]

NARRATIVE: CASE EVENT DATE: 20160629
